FAERS Safety Report 25167015 (Version 1)
Quarter: 2025Q2

REPORT INFORMATION
  Report Type: Spontaneous
  Country: JP (occurrence: JP)
  Receive Date: 20250407
  Receipt Date: 20250407
  Transmission Date: 20250717
  Serious: Yes (Hospitalization, Other)
  Sender: Steriscience PTE
  Company Number: JP-STERISCIENCE B.V.-2025-ST-000648

PATIENT
  Age: 21 Year
  Sex: Female

DRUGS (13)
  1. MIDAZOLAM [Interacting]
     Active Substance: MIDAZOLAM
     Indication: Status epilepticus
     Dosage: CONTINUOUS
     Route: 065
  2. DIAZEPAM [Interacting]
     Active Substance: DIAZEPAM
     Indication: Generalised tonic-clonic seizure
     Route: 042
  3. PROPOFOL [Interacting]
     Active Substance: PROPOFOL
     Indication: Status epilepticus
     Dosage: 37 MICROGRAM/KILOGRAM, QMINUTE
     Route: 065
  4. DEXTROMETHORPHAN [Interacting]
     Active Substance: DEXTROMETHORPHAN
     Indication: Intentional overdose
     Route: 065
  5. TRIAZOLAM [Interacting]
     Active Substance: TRIAZOLAM
     Indication: Schizophrenia
     Route: 065
  6. ALPRAZOLAM [Interacting]
     Active Substance: ALPRAZOLAM
     Indication: Schizophrenia
     Route: 065
  7. RISPERIDONE [Interacting]
     Active Substance: RISPERIDONE
     Indication: Schizophrenia
     Route: 065
  8. DULOXETINE [Interacting]
     Active Substance: DULOXETINE
     Indication: Schizophrenia
     Route: 065
  9. BROTIZOLAM [Interacting]
     Active Substance: BROTIZOLAM
     Indication: Schizophrenia
     Route: 065
  10. NALOXONE [Concomitant]
     Active Substance: NALOXONE
     Indication: Toxicity to various agents
     Route: 065
  11. NOREPINEPHRINE [Concomitant]
     Active Substance: NOREPINEPHRINE
     Indication: Hypotension
     Route: 065
  12. FENTANYL [Concomitant]
     Active Substance: FENTANYL
     Indication: Endotracheal intubation
     Route: 065
  13. ACTIVATED CHARCOAL [Concomitant]
     Active Substance: ACTIVATED CHARCOAL
     Indication: Toxicity to various agents
     Dosage: UNK, Q4H
     Route: 065

REACTIONS (4)
  - Cranial nerve disorder [None]
  - Areflexia [None]
  - Drug interaction [Unknown]
  - Drug ineffective for unapproved indication [Unknown]
